FAERS Safety Report 15660704 (Version 2)
Quarter: 2019Q1

REPORT INFORMATION
  Report Type: Spontaneous
  Country: AU (occurrence: AU)
  Receive Date: 20181127
  Receipt Date: 20190116
  Transmission Date: 20190417
  Serious: Yes (Other)
  Sender: FDA-Public Use
  Company Number: AU-SUNOVION-2018DSP013961

PATIENT
  Sex: Male
  Weight: 100 kg

DRUGS (2)
  1. LATUDA [Suspect]
     Active Substance: LURASIDONE HYDROCHLORIDE
     Indication: SCHIZOPHRENIA
     Dosage: 40 MG, SINGLE
     Route: 048
     Dates: start: 201706
  2. LATUDA [Suspect]
     Active Substance: LURASIDONE HYDROCHLORIDE
     Dosage: 80 MG, SINGLE
     Route: 048
     Dates: end: 201707

REACTIONS (2)
  - Schizophrenia [Recovering/Resolving]
  - Homicide [Unknown]

NARRATIVE: CASE EVENT DATE: 2017
